FAERS Safety Report 6095939-8 (Version None)
Quarter: 2009Q1

REPORT INFORMATION
  Report Type: 
  Country: None (occurrence: None)
  Receive Date: 20090227
  Receipt Date: 20080721
  Transmission Date: 20090719
  Serious: Yes (Other)
  Sender: FDA-Public Use
  Company Number: A0738638A

PATIENT
  Age: 27 Year
  Sex: Female

DRUGS (7)
  1. LAMICTAL [Suspect]
     Indication: EPILEPSY
     Dosage: 200MG TWICE PER DAY
     Route: 048
     Dates: start: 20060101
  2. ZONEGRAN [Concomitant]
  3. KEPPRA [Concomitant]
  4. EFFEXOR XR [Concomitant]
  5. NORETHINDRONE AND ETHINYL ESTRADIOL [Concomitant]
  6. VERAPAMIL ER [Concomitant]
  7. ATIVAN [Concomitant]

REACTIONS (1)
  - CONVULSION [None]
